FAERS Safety Report 17116621 (Version 1)
Quarter: 2019Q4

REPORT INFORMATION
  Report Type: Spontaneous
  Country: PT (occurrence: PT)
  Receive Date: 20191205
  Receipt Date: 20191205
  Transmission Date: 20200122
  Serious: Yes (Life-Threatening)
  Sender: FDA-Public Use
  Company Number: PT-MYLANLABS-2019M1118744

PATIENT
  Age: 80 Year
  Sex: Male
  Weight: 60 kg

DRUGS (8)
  1. FENTANYL. [Interacting]
     Active Substance: FENTANYL
     Dosage: 150 MICROGRAM
  2. ROCURONIUM [Interacting]
     Active Substance: ROCURONIUM BROMIDE
     Dosage: 50 MILLIGRAM
  3. REMIFENTANIL [Interacting]
     Active Substance: REMIFENTANIL
     Indication: MAINTENANCE OF ANAESTHESIA
     Dosage: 0.15 MICROGRAM/KILOGRAM
     Route: 042
  4. MIDAZOLAM [Interacting]
     Active Substance: MIDAZOLAM HYDROCHLORIDE
     Indication: PREMEDICATION
     Dosage: 3 MILLIGRAM
     Dates: start: 20180614, end: 20180614
  5. FENTANYL. [Suspect]
     Active Substance: FENTANYL
     Indication: INDUCTION OF ANAESTHESIA
     Dosage: 100 MICROGRAM
  6. ROCURONIUM [Interacting]
     Active Substance: ROCURONIUM BROMIDE
     Indication: INDUCTION OF ANAESTHESIA
     Dosage: 20 MILLIGRAM
  7. PROPOFOL. [Concomitant]
     Active Substance: PROPOFOL
     Indication: INDUCTION OF ANAESTHESIA
     Dosage: 150 MILLIGRAM
  8. SEVOFLURANE. [Interacting]
     Active Substance: SEVOFLURANE
     Indication: MAINTENANCE OF ANAESTHESIA
     Dosage: 1,0-1,2 PERCENT IN A MIX OF 45 PERCENT F O2 AND AIR.
     Route: 055

REACTIONS (2)
  - Neuromuscular block prolonged [Recovered/Resolved]
  - Drug interaction [Unknown]
